FAERS Safety Report 19186987 (Version 1)
Quarter: 2021Q2

REPORT INFORMATION
  Report Type: Report from Study
  Country: None (occurrence: CA)
  Receive Date: 20210428
  Receipt Date: 20210428
  Transmission Date: 20210717
  Serious: Yes (Other)
  Sender: FDA-Public Use
  Company Number: CA-ABBVIE-20K-028-3623903-00

PATIENT
  Age: 45 Year
  Sex: Male

DRUGS (1)
  1. HUMIRA [Suspect]
     Active Substance: ADALIMUMAB
     Indication: ANKYLOSING SPONDYLITIS
     Route: 058
     Dates: start: 20200624

REACTIONS (9)
  - Gait disturbance [Not Recovered/Not Resolved]
  - Therapeutic product effect incomplete [Unknown]
  - Insomnia [Unknown]
  - Pain [Unknown]
  - Back pain [Unknown]
  - Mobility decreased [Not Recovered/Not Resolved]
  - Back pain [Recovered/Resolved]
  - Insomnia [Recovered/Resolved]
  - Loss of consciousness [Unknown]

NARRATIVE: CASE EVENT DATE: 2020
